FAERS Safety Report 21252961 (Version 1)
Quarter: 2022Q3

REPORT INFORMATION
  Report Type: Spontaneous
  Country: US (occurrence: None)
  Receive Date: 20220825
  Receipt Date: 20220825
  Transmission Date: 20221027
  Serious: No
  Sender: FDA-Public Use
  Company Number: None

PATIENT
  Sex: Male

DRUGS (2)
  1. VITRAKVI [Suspect]
     Active Substance: LAROTRECTINIB
     Indication: Lung neoplasm malignant
     Dosage: OTHER FREQUENCY : 3CAP 2X DAILY;?
     Route: 048
     Dates: start: 20220824
  2. VITRAKVI [Suspect]
     Active Substance: LAROTRECTINIB
     Indication: Bronchial carcinoma

REACTIONS (1)
  - Malignant neoplasm progression [None]
